FAERS Safety Report 16056520 (Version 1)
Quarter: 2019Q2

REPORT INFORMATION
  Report Type: Spontaneous
  Country: US (occurrence: US)
  Receive Date: 20190309
  Receipt Date: 20190309
  Transmission Date: 20190711
  Serious: Yes (Other)
  Sender: FDA-Public Use
  Company Number: None

PATIENT
  Age: 31 Year
  Sex: Female

DRUGS (1)
  1. PARAGARD T 380A [Suspect]
     Active Substance: COPPER
     Indication: CONTRACEPTION
     Dosage: ?          OTHER FREQUENCY:1 IUD FOR 10 YEARS;?
     Route: 015
     Dates: start: 20171201, end: 20180723

REACTIONS (2)
  - Pregnancy with contraceptive device [None]
  - Abortion induced [None]

NARRATIVE: CASE EVENT DATE: 20180723
